FAERS Safety Report 16700284 (Version 1)
Quarter: 2019Q3

REPORT INFORMATION
  Report Type: Spontaneous
  Country: CA (occurrence: CA)
  Receive Date: 20190814
  Receipt Date: 20190814
  Transmission Date: 20191004
  Serious: Yes (Other)
  Sender: FDA-Public Use
  Company Number: CA-AUROBINDO-AUR-APL-2019-046073

PATIENT

DRUGS (2)
  1. TELMISARTAN TABLETS [Suspect]
     Active Substance: TELMISARTAN
     Indication: PRODUCT USED FOR UNKNOWN INDICATION
     Dosage: 80 MILLIGRAM
     Route: 065
  2. SANDOSTATIN [Suspect]
     Active Substance: OCTREOTIDE ACETATE
     Indication: CARCINOID TUMOUR
     Dosage: 30 MILLIGRAM (EVERY MONTH)
     Route: 030

REACTIONS (12)
  - Deafness [Recovering/Resolving]
  - Peripheral swelling [Recovering/Resolving]
  - Joint swelling [Recovering/Resolving]
  - Hypoaesthesia [Recovering/Resolving]
  - Oedema [Recovering/Resolving]
  - Paraesthesia [Recovering/Resolving]
  - Ingrowing nail [Recovering/Resolving]
  - Abnormal faeces [Recovering/Resolving]
  - Blood pressure systolic increased [Recovering/Resolving]
  - Erythema [Recovering/Resolving]
  - Diarrhoea [Recovering/Resolving]
  - Weight decreased [Recovering/Resolving]
